FAERS Safety Report 14767458 (Version 1)
Quarter: 2018Q2

REPORT INFORMATION
  Report Type: Spontaneous
  Country: US (occurrence: US)
  Receive Date: 20180417
  Receipt Date: 20180417
  Transmission Date: 20180711
  Serious: No
  Sender: FDA-Public Use
  Company Number: US-PFIZER INC-2018154465

PATIENT
  Sex: Female

DRUGS (1)
  1. ADVIL LIQUI-GELS [Suspect]
     Active Substance: IBUPROFEN
     Indication: BURSITIS
     Dosage: 1 DF, 1X/DAY (1 CAPSULE EACH NIGHT AT BEDTIME)

REACTIONS (2)
  - Abdominal discomfort [Unknown]
  - Product odour abnormal [Unknown]
